FAERS Safety Report 8289186-9 (Version None)
Quarter: 2012Q2

REPORT INFORMATION
  Report Type: 
  Country: None (occurrence: None)
  Receive Date: 20120417
  Receipt Date: 20120411
  Transmission Date: 20120825
  Serious: Yes (Other)
  Sender: FDA-Public Use
  Company Number: PHEH2012US007894

PATIENT
  Sex: Female

DRUGS (2)
  1. FOSAMAX [Suspect]
  2. RECLAST [Suspect]
     Dosage: UNK
     Route: 042

REACTIONS (1)
  - INJURY [None]
